FAERS Safety Report 17948129 (Version 1)
Quarter: 2020Q2

REPORT INFORMATION
  Report Type: Spontaneous
  Country: US (occurrence: US)
  Receive Date: 20200625
  Receipt Date: 20200625
  Transmission Date: 20200714
  Serious: Yes (Hospitalization)
  Sender: FDA-Public Use
  Company Number: None

PATIENT
  Age: 58 Year
  Sex: Female

DRUGS (30)
  1. CARVEDILOL. [Concomitant]
     Active Substance: CARVEDILOL
  2. DORZOL/TIMOL [Concomitant]
  3. ELIQUIS [Concomitant]
     Active Substance: APIXABAN
  4. XARELTO [Concomitant]
     Active Substance: RIVAROXABAN
  5. GLUCOS/CHOND [Concomitant]
  6. NEORAL [Concomitant]
     Active Substance: CYCLOSPORINE
  7. FLUOROURACIL. [Concomitant]
     Active Substance: FLUOROURACIL
  8. VAGIFEM [Concomitant]
     Active Substance: ESTRADIOL
  9. SILDENAFIL 20MG TAB [Suspect]
     Active Substance: SILDENAFIL
     Indication: PULMONARY ARTERIAL HYPERTENSION
     Route: 048
     Dates: start: 20150324
  10. ALENDRONATE [Concomitant]
     Active Substance: ALENDRONATE SODIUM
  11. LASIX [Concomitant]
     Active Substance: FUROSEMIDE
  12. MULTIVITAMIN [Concomitant]
     Active Substance: VITAMINS
  13. SOD BICARB [Concomitant]
  14. CINACALCET. [Concomitant]
     Active Substance: CINACALCET
  15. DILTIAZEM. [Concomitant]
     Active Substance: DILTIAZEM
  16. JANUVIA [Concomitant]
     Active Substance: SITAGLIPTIN PHOSPHATE
  17. LOSARTAN POT [Concomitant]
     Active Substance: LOSARTAN POTASSIUM
  18. WARFARIN [Concomitant]
     Active Substance: WARFARIN
  19. VITAMIN D3 [Concomitant]
     Active Substance: CHOLECALCIFEROL
  20. METFORMIN [Concomitant]
     Active Substance: METFORMIN HYDROCHLORIDE
  21. SODIUM BICAR [Concomitant]
  22. AMIODARONE [Concomitant]
     Active Substance: AMIODARONE
  23. ATORVASTATIN [Concomitant]
     Active Substance: ATORVASTATIN
  24. EZETIMBE [Concomitant]
     Active Substance: EZETIMIBE
  25. FUROSEMIDE. [Concomitant]
     Active Substance: FUROSEMIDE
  26. METOPROLOL. [Concomitant]
     Active Substance: METOPROLOL
  27. LATANOPROST. [Concomitant]
     Active Substance: LATANOPROST
  28. MYFORTIC [Concomitant]
     Active Substance: MYCOPHENOLATE SODIUM
  29. OMEPRAZOLE. [Concomitant]
     Active Substance: OMEPRAZOLE
  30. PRILOSEC [Concomitant]
     Active Substance: OMEPRAZOLE MAGNESIUM

REACTIONS (1)
  - Cardiac disorder [None]

NARRATIVE: CASE EVENT DATE: 20200620
